FAERS Safety Report 6031958-5 (Version None)
Quarter: 2008Q4

REPORT INFORMATION
  Report Type: 
  Country: None (occurrence: None)
  Receive Date: 20081231
  Receipt Date: 20080918
  Transmission Date: 20090506
  Serious: Yes (Other)
  Sender: FDA-Public Use
  Company Number: 177702USA

PATIENT
  Sex: Male

DRUGS (1)
  1. LAMOTRIGINE [Suspect]

REACTIONS (2)
  - CONVULSION [None]
  - DRUG INEFFECTIVE [None]
